FAERS Safety Report 9677703 (Version 2)
Quarter: 2014Q1

REPORT INFORMATION
  Report Type: Report from Study
  Country: TW (occurrence: TW)
  Receive Date: 20131108
  Receipt Date: 20140109
  Transmission Date: 20141002
  Serious: Yes (Hospitalization)
  Sender: FDA-Public Use
  Company Number: TW-ELI_LILLY_AND_COMPANY-TW201310008800

PATIENT
  Age: 60 Year
  Sex: Male
  Weight: 53 kg

DRUGS (5)
  1. NECITUMUMAB (11F8) (LY3012211) [Suspect]
     Indication: NON-SMALL CELL LUNG CANCER
     Dosage: 800 MG, DAYS 1 AND 8 - EVERY 3 WEEK CYCLE
     Route: 042
     Dates: start: 20130910, end: 20130910
  2. GEMCITABINE HYDROCHLORIDE [Suspect]
     Indication: NON-SMALL CELL LUNG CANCER
     Dosage: 1250 MG/M2, DAYS 1 AND 8 -EVERY 3 WEEK CYCLE
     Route: 042
     Dates: start: 20130910, end: 20130910
  3. CISPLATIN [Suspect]
     Indication: NON-SMALL CELL LUNG CANCER
     Dosage: 75 MG/M2, DAY 1 AND 3 EVERY 3 WEEK CYCLE
     Route: 042
     Dates: start: 20130910, end: 20130910
  4. TAXOTERE [Concomitant]
     Indication: NON-SMALL CELL LUNG CANCER
     Dosage: 50 MG, UNK
     Dates: start: 20131003
  5. ERLOTINIB [Concomitant]
     Indication: NON-SMALL CELL LUNG CANCER

REACTIONS (1)
  - Pseudomembranous colitis [Recovered/Resolved]
